FAERS Safety Report 5863065-6 (Version None)
Quarter: 2008Q3

REPORT INFORMATION
  Report Type: 
  Country: None (occurrence: None)
  Receive Date: 20080828
  Receipt Date: 20080826
  Transmission Date: 20090109
  Serious: Yes (Life-Threatening)
  Sender: FDA-Public Use
  Company Number: JP-ASTRAZENECA-2008AP06512

PATIENT
  Age: 60 Year
  Sex: Male

DRUGS (1)
  1. TENORMIN TABLETS 50 [Suspect]
     Dosage: DOSE UNKNOWN
     Route: 048
     Dates: start: 20080822, end: 20080822

REACTIONS (3)
  - CARDIAC ARREST [None]
  - INTENTIONAL OVERDOSE [None]
  - SUICIDE ATTEMPT [None]
